FAERS Safety Report 6463339-4 (Version None)
Quarter: 2009Q4

REPORT INFORMATION
  Report Type: 
  Country: None (occurrence: None)
  Receive Date: 20091130
  Receipt Date: 20090811
  Transmission Date: 20100525
  Serious: Yes (Other)
  Sender: FDA-Public Use
  Company Number: US-AMGEN-QUU355779

PATIENT
  Sex: Female

DRUGS (4)
  1. ENBREL [Suspect]
     Indication: PSORIASIS
     Route: 058
     Dates: start: 20041207, end: 20080701
  2. LIPITOR [Concomitant]
     Dates: start: 20040101
  3. TRICOR [Concomitant]
  4. KLONOPIN [Concomitant]
     Dates: start: 20090301

REACTIONS (2)
  - OPTIC NEURITIS [None]
  - THERAPEUTIC RESPONSE DECREASED [None]
